FAERS Safety Report 20002449 (Version 2)
Quarter: 2021Q4

REPORT INFORMATION
  Report Type: Report from Study
  Country: US (occurrence: US)
  Receive Date: 20211027
  Receipt Date: 20211117
  Transmission Date: 20220303
  Serious: Yes (Hospitalization, Disabling, Other)
  Sender: FDA-Public Use
  Company Number: US-GILEAD-2021-0554203

PATIENT
  Sex: Male
  Weight: 108.84 kg

DRUGS (6)
  1. EMTRICITABINE\TENOFOVIR [Suspect]
     Active Substance: EMTRICITABINE\TENOFOVIR
     Indication: Prophylaxis against HIV infection
     Dosage: 1 DOSAGE FORM (200/25 MG) HIGH DOSE, QD
     Route: 048
     Dates: start: 201307
  2. EMTRICITABINE\TENOFOVIR [Suspect]
     Active Substance: EMTRICITABINE\TENOFOVIR
     Dosage: 1 DOSAGE FORM (200/25 MG) HIGH DOSE, QD
     Route: 048
     Dates: start: 20180619
  3. LOSARTAN [Concomitant]
     Active Substance: LOSARTAN
     Indication: Hormone therapy
     Dosage: 25 MG, BID
     Route: 065
     Dates: start: 2013
  4. CARVEDILOL [Concomitant]
     Active Substance: CARVEDILOL
     Indication: Cardiac disorder
     Dosage: CARVEDIL 25MG/DAYS SUPPLY=90/QTY=180
     Route: 065
     Dates: start: 201307
  5. LOVASTATIN [Concomitant]
     Active Substance: LOVASTATIN
     Indication: Cardiac disorder
     Dosage: 40 MG, QD
     Dates: start: 20180619
  6. HYDROCHLOROTHIAZIDE [Concomitant]
     Active Substance: HYDROCHLOROTHIAZIDE
     Indication: Cardiac disorder
     Dosage: 125 MG, QD
     Dates: start: 20180619

REACTIONS (1)
  - Cerebrovascular accident [Not Recovered/Not Resolved]

NARRATIVE: CASE EVENT DATE: 20130701
